FAERS Safety Report 21377806 (Version 1)
Quarter: 2022Q3

REPORT INFORMATION
  Report Type: Report from Study
  Country: ES (occurrence: ES)
  Receive Date: 20220926
  Receipt Date: 20220926
  Transmission Date: 20221027
  Serious: Yes (Life-Threatening, Hospitalization)
  Sender: FDA-Public Use
  Company Number: None

PATIENT
  Age: 31 Year
  Sex: Female

DRUGS (6)
  1. SERTRALINE HYDROCHLORIDE [Suspect]
     Active Substance: SERTRALINE HYDROCHLORIDE
     Dosage: 1600 MG, SINGLE
     Route: 048
     Dates: start: 20220809, end: 20220809
  2. PREGABALIN [Suspect]
     Active Substance: PREGABALIN
     Indication: Depression
     Dosage: 350 MG, 1X/DAY
     Route: 048
     Dates: start: 20220324, end: 20220808
  3. PREGABALIN [Suspect]
     Active Substance: PREGABALIN
     Dosage: 28 TABLETS IN TOTAL IN A SINGLE DOSE
     Route: 048
     Dates: start: 20220809, end: 20220809
  4. OLANZAPINE [Suspect]
     Active Substance: OLANZAPINE
     Dosage: 135 MG, SINGLE
     Route: 048
     Dates: start: 20220809, end: 20220809
  5. LORMETAZEPAM [Suspect]
     Active Substance: LORMETAZEPAM
     Indication: Insomnia
     Dosage: 2 MG, 1X/DAY
     Route: 048
     Dates: start: 202203, end: 20220808
  6. LORMETAZEPAM [Suspect]
     Active Substance: LORMETAZEPAM
     Dosage: 40 MG, SINGLE
     Route: 048
     Dates: start: 20220809, end: 20220809

REACTIONS (4)
  - Suicide attempt [Recovered/Resolved]
  - Depressed level of consciousness [Recovered/Resolved]
  - Intentional overdose [Recovered/Resolved]
  - Off label use [Unknown]

NARRATIVE: CASE EVENT DATE: 20220809
